FAERS Safety Report 20534713 (Version 1)
Quarter: 2022Q1

REPORT INFORMATION
  Report Type: Spontaneous
  Country: JP (occurrence: JP)
  Receive Date: 20220302
  Receipt Date: 20220302
  Transmission Date: 20220423
  Serious: Yes (Hospitalization)
  Sender: FDA-Public Use
  Company Number: JP-JNJJAKJPN-J22004137

PATIENT
  Age: 6 Decade

DRUGS (2)
  1. STELARA [Suspect]
     Active Substance: USTEKINUMAB
     Indication: Crohn^s disease
     Route: 058
  2. STELARA [Suspect]
     Active Substance: USTEKINUMAB
     Dosage: DOSE UNKNOWN?USTEKINUMAB (GENETICAL RECOMBINATION):130MG
     Route: 042

REACTIONS (2)
  - Hospitalisation [Recovered/Resolved]
  - Abdominal pain [Unknown]
